FAERS Safety Report 5080528-4 (Version None)
Quarter: 2006Q3

REPORT INFORMATION
  Report Type: 
  Country: None (occurrence: None)
  Receive Date: 20060809
  Receipt Date: 20060724
  Transmission Date: 20061208
  Serious: Yes (Other)
  Sender: FDA-Public Use
  Company Number: 2006AL001932

PATIENT
  Age: 59 Year
  Sex: Female

DRUGS (3)
  1. DICLOFENAC SODIUM [Suspect]
     Indication: PLANTAR FASCIITIS
     Dosage: QD;
     Dates: start: 20050224, end: 20060208
  2. ACETAMINOPHEN [Concomitant]
  3. OMEPRAZOLE [Concomitant]

REACTIONS (1)
  - IRON DEFICIENCY ANAEMIA [None]
